FAERS Safety Report 10775850 (Version 1)
Quarter: 2015Q1

REPORT INFORMATION
  Report Type: Spontaneous
  Country: US (occurrence: None)
  Receive Date: 20150205
  Receipt Date: 20150205
  Transmission Date: 20150721
  Serious: Yes (Other)
  Sender: FDA-Public Use
  Company Number: None

PATIENT
  Age: 36 Year
  Sex: Male
  Weight: 70.31 kg

DRUGS (1)
  1. TAMIFLU [Suspect]
     Active Substance: OSELTAMIVIR PHOSPHATE
     Indication: PNEUMONIA
     Dosage: TAKEN BY MOUTH
     Dates: start: 20150130, end: 20150131

REACTIONS (4)
  - Parosmia [None]
  - Hallucination [None]
  - Paranoia [None]
  - Psychotic disorder [None]

NARRATIVE: CASE EVENT DATE: 20150130
